FAERS Safety Report 6595807-9 (Version None)
Quarter: 2010Q1

REPORT INFORMATION
  Report Type: 
  Country: None (occurrence: None)
  Receive Date: 20100219
  Receipt Date: 20100219
  Transmission Date: 20100710
  Serious: No
  Sender: FDA-Public Use
  Company Number: None

PATIENT
  Age: 66 Year
  Sex: Male
  Weight: 87.0906 kg

DRUGS (3)
  1. TRILIPIX [Suspect]
     Indication: HIGH DENSITY LIPOPROTEIN DECREASED
     Dosage: 45MG (1) DAILY
     Dates: start: 20090519, end: 20090814
  2. TRILIPIX [Suspect]
     Indication: HYPERTENSION
     Dosage: 45MG (1) DAILY
     Dates: start: 20090519, end: 20090814
  3. TRILIPIX [Suspect]
     Indication: LOW DENSITY LIPOPROTEIN INCREASED
     Dosage: 45MG (1) DAILY
     Dates: start: 20090519, end: 20090814

REACTIONS (10)
  - BLOOD CREATININE INCREASED [None]
  - DYSPEPSIA [None]
  - FATIGUE [None]
  - HEADACHE [None]
  - INCOHERENT [None]
  - MEMORY IMPAIRMENT [None]
  - MYALGIA [None]
  - PAIN [None]
  - POLLAKIURIA [None]
  - SOMNOLENCE [None]
